FAERS Safety Report 12332770 (Version 1)
Quarter: 2016Q2

REPORT INFORMATION
  Report Type: Spontaneous
  Country: US (occurrence: US)
  Receive Date: 20160504
  Receipt Date: 20160504
  Transmission Date: 20160815
  Serious: No
  Sender: FDA-Public Use
  Company Number: US-ROCHE-1682700

PATIENT
  Age: 77 Year
  Sex: Male
  Weight: 79 kg

DRUGS (4)
  1. ESBRIET [Suspect]
     Active Substance: PIRFENIDONE
     Dosage: 3-3-2
     Route: 048
     Dates: start: 201512
  2. ESBRIET [Suspect]
     Active Substance: PIRFENIDONE
     Dosage: 3-3-3
     Route: 048
  3. ESBRIET [Suspect]
     Active Substance: PIRFENIDONE
     Indication: IDIOPATHIC PULMONARY FIBROSIS
     Dosage: DOSE INTERRUPTED (FOR 5 DAYS)
     Route: 048
     Dates: start: 20151106, end: 20151122
  4. ESBRIET [Suspect]
     Active Substance: PIRFENIDONE
     Dosage: 3-2-2
     Route: 048
     Dates: start: 20151208

REACTIONS (2)
  - Nervousness [Recovered/Resolved]
  - Insomnia [Recovered/Resolved]

NARRATIVE: CASE EVENT DATE: 20151123
